FAERS Safety Report 7004107-4 (Version None)
Quarter: 2010Q3

REPORT INFORMATION
  Report Type: 
  Country: None (occurrence: None)
  Receive Date: 20100920
  Receipt Date: 20100129
  Transmission Date: 20110219
  Serious: No
  Sender: FDA-Public Use
  Company Number: US-WYE-H13377910

PATIENT
  Sex: Female
  Weight: 97.61 kg

DRUGS (3)
  1. PROTONIX [Suspect]
     Indication: GASTROOESOPHAGEAL REFLUX DISEASE
     Route: 048
     Dates: start: 20060101
  2. KETOPROFEN [Concomitant]
  3. MELOXICAM [Concomitant]

REACTIONS (1)
  - DRUG SCREEN POSITIVE [None]
